FAERS Safety Report 14116626 (Version 35)
Quarter: 2020Q3

REPORT INFORMATION
  Report Type: Spontaneous
  Country: US (occurrence: US)
  Receive Date: 20171023
  Receipt Date: 20200722
  Transmission Date: 20201102
  Serious: Yes (Hospitalization, Congenital Anomaly)
  Sender: FDA-Public Use
  Company Number: US-ACTELION-A-US2017-161157

PATIENT
  Age: 27 Year
  Sex: Female
  Weight: 72.56 kg

DRUGS (23)
  1. VELETRI [Suspect]
     Active Substance: EPOPROSTENOL
     Dosage: UNK
     Route: 042
  2. ADCIRCA [Concomitant]
     Active Substance: TADALAFIL
     Dosage: 40 MG, QD
  3. ASPIRIN (E.C.) [Concomitant]
     Active Substance: ASPIRIN
     Dosage: 81 MG, QD
  4. TADALAFIL. [Concomitant]
     Active Substance: TADALAFIL
  5. VELETRI [Suspect]
     Active Substance: EPOPROSTENOL
     Dosage: 14 NG/KG, PER MIN
     Route: 042
  6. XARELTO [Concomitant]
     Active Substance: RIVAROXABAN
     Dosage: UNK
  7. FERROUS SULFATE. [Concomitant]
     Active Substance: FERROUS SULFATE
     Dosage: 325 MG, TID
  8. FUROSEMIDE. [Concomitant]
     Active Substance: FUROSEMIDE
     Dosage: 20 MG, QOD
  9. ELIQUIS [Concomitant]
     Active Substance: APIXABAN
  10. OPSUMIT [Suspect]
     Active Substance: MACITENTAN
     Dosage: 10 MG, QD
     Route: 048
  11. VALACYCLOVIR [Concomitant]
     Active Substance: VALACYCLOVIR HYDROCHLORIDE
     Dosage: 500 MG, BID
  12. ASCORBIC ACID. [Concomitant]
     Active Substance: ASCORBIC ACID
     Dosage: 500 MG, QD
  13. VELETRI [Suspect]
     Active Substance: EPOPROSTENOL
     Indication: PULMONARY HYPERTENSION
     Dosage: 20 NG/KG, PER MIN
     Route: 042
  14. VELETRI [Suspect]
     Active Substance: EPOPROSTENOL
     Dosage: 14.1 NG/KG, PER MIN
     Route: 042
  15. VELETRI [Suspect]
     Active Substance: EPOPROSTENOL
     Dosage: 17 NG/KG, PER MIN
     Route: 042
  16. OPSUMIT [Suspect]
     Active Substance: MACITENTAN
     Indication: PULMONARY HYPERTENSION
     Dosage: 10 MG, QD
     Route: 048
  17. TRINTELLIX [Concomitant]
     Active Substance: VORTIOXETINE HYDROBROMIDE
     Dosage: 20 MG, QD
  18. SPIRONOLACTONE. [Concomitant]
     Active Substance: SPIRONOLACTONE
     Dosage: 25 MG, QD
  19. CLONAZEPAM. [Concomitant]
     Active Substance: CLONAZEPAM
     Dosage: 1 MG, QPM
  20. VELETRI [Suspect]
     Active Substance: EPOPROSTENOL
     Dosage: 12 NG/KG, PER MIN
     Route: 042
  21. CETIRIZINE [Concomitant]
     Active Substance: CETIRIZINE HYDROCHLORIDE
     Dosage: 10 MG, QD
  22. PANTOPRAZOLE [Concomitant]
     Active Substance: PANTOPRAZOLE
     Dosage: 40 MG, QD
  23. TRAMADOL. [Concomitant]
     Active Substance: TRAMADOL
     Dosage: 100 MG, Q6HRS

REACTIONS (45)
  - Device related infection [Unknown]
  - Atrial septal defect [Unknown]
  - Anxiety [Recovering/Resolving]
  - Syncope [Unknown]
  - Pulmonary pain [Unknown]
  - Dermatitis contact [Unknown]
  - Flushing [Unknown]
  - Angina pectoris [Unknown]
  - Catheter site discharge [Unknown]
  - Pain in jaw [Unknown]
  - Dyspnoea exertional [Unknown]
  - Chills [Recovering/Resolving]
  - Catheter site hypersensitivity [Unknown]
  - Pneumonia [Unknown]
  - Dizziness [Not Recovered/Not Resolved]
  - Chest pain [Unknown]
  - Orthopnoea [Unknown]
  - Diarrhoea [Unknown]
  - Nausea [Recovering/Resolving]
  - Neck pain [Unknown]
  - Dyspnoea [Unknown]
  - Malaise [Unknown]
  - Catheter site pruritus [Unknown]
  - Palpitations [Unknown]
  - Fatigue [Recovering/Resolving]
  - Pain in extremity [Unknown]
  - Catheter site erythema [Unknown]
  - Pain [Unknown]
  - Staphylococcal infection [Recovering/Resolving]
  - Catheter site infection [Recovering/Resolving]
  - Device related sepsis [Unknown]
  - Device alarm issue [Unknown]
  - Acute kidney injury [Recovering/Resolving]
  - Dehydration [Recovering/Resolving]
  - Back pain [Unknown]
  - Fluid retention [Unknown]
  - Catheter site thrombosis [Unknown]
  - Device dislocation [Unknown]
  - Headache [Unknown]
  - Vomiting [Recovering/Resolving]
  - Bacteraemia [Recovering/Resolving]
  - Device occlusion [Unknown]
  - Pyrexia [Unknown]
  - Atrial septal defect repair [Unknown]
  - Depression [Recovering/Resolving]

NARRATIVE: CASE EVENT DATE: 201711
